FAERS Safety Report 9437408 (Version 4)
Quarter: 2013Q4

REPORT INFORMATION
  Report Type: Report from Study
  Country: US (occurrence: US)
  Receive Date: 20130802
  Receipt Date: 20131211
  Transmission Date: 20140711
  Serious: Yes (Disabling, Other)
  Sender: FDA-Public Use
  Company Number: US-US-EMD SERONO, INC.-7226668

PATIENT
  Age: 12 Year
  Sex: Male
  Weight: 66 kg

DRUGS (5)
  1. SAIZEN [(SOMATROPIN (RDNA ORIGIN) FOR INJECTION)] [Suspect]
     Indication: GROWTH HORMONE DEFICIENCY
     Route: 058
     Dates: start: 201109
  2. SAIZEN [(SOMATROPIN (RDNA ORIGIN) FOR INJECTION)] [Suspect]
     Route: 058
     Dates: start: 20111005, end: 20130725
  3. SOLU-CORTEF [Concomitant]
     Indication: PRODUCT USED FOR UNKNOWN INDICATION
  4. HYDROCORTISONE                     /00028604/ [Concomitant]
     Indication: ADRENOGENITAL SYNDROME
     Route: 048
  5. LETROZOLE [Concomitant]
     Indication: BONE DISORDER
     Route: 048
     Dates: start: 201111

REACTIONS (3)
  - Fall [Unknown]
  - Epiphysiolysis [Recovering/Resolving]
  - Weight increased [Unknown]
